FAERS Safety Report 4499003-0 (Version None)
Quarter: 2004Q4

REPORT INFORMATION
  Report Type: 
  Country: None (occurrence: None)
  Receive Date: 20041108
  Receipt Date: 20041025
  Transmission Date: 20050328
  Serious: Yes (Other)
  Sender: FDA-Public Use
  Company Number: A03200403569

PATIENT
  Sex: Male

DRUGS (3)
  1. ELOXATIN [Suspect]
     Dosage: INTRAVENOUS NOS
     Route: 042
  2. FLUOROURACIL [Concomitant]
  3. LEUCOVORIN [Concomitant]

REACTIONS (4)
  - DERMATITIS EXFOLIATIVE [None]
  - FEELING ABNORMAL [None]
  - OEDEMA [None]
  - ORGAN FAILURE [None]
